FAERS Safety Report 9269048 (Version 2)
Quarter: 2013Q2

REPORT INFORMATION
  Report Type: Spontaneous
  Country: JP (occurrence: JP)
  Receive Date: 20130503
  Receipt Date: 20130517
  Transmission Date: 20140414
  Serious: Yes (Hospitalization)
  Sender: FDA-Public Use
  Company Number: JP-AMGEN-JPNSP2013030593

PATIENT
  Age: 54 Year
  Sex: Female

DRUGS (8)
  1. GRAN [Suspect]
     Indication: NEUTROPENIA
     Dosage: UNK
     Route: 065
     Dates: start: 20110827
  2. PREDNISOLONE [Concomitant]
     Dosage: 50 MG, UNK
     Route: 048
     Dates: start: 200908
  3. PREDNISOLONE [Concomitant]
     Dosage: 10 MG, UNK
     Route: 048
     Dates: start: 201005
  4. PREDNISOLONE [Concomitant]
     Dosage: 6 MG, UNK
     Dates: start: 201107
  5. PREDNISOLONE [Concomitant]
     Dosage: 30 MG, UNK
     Route: 048
     Dates: start: 20110826
  6. PREDNISOLONE [Concomitant]
     Dosage: 50 MG, UNK
     Route: 048
     Dates: start: 20110905
  7. TACROLIMUS MONOHYDRATE [Concomitant]
     Dosage: 2 MG, UNK
     Route: 048
     Dates: start: 201011
  8. TACROLIMUS MONOHYDRATE [Concomitant]
     Dosage: 3 MG, UNK
     Route: 048
     Dates: start: 201102

REACTIONS (1)
  - Acute myeloid leukaemia [Recovering/Resolving]
